FAERS Safety Report 24239753 (Version 2)
Quarter: 2024Q4

REPORT INFORMATION
  Report Type: Spontaneous
  Country: US (occurrence: US)
  Receive Date: 20240822
  Receipt Date: 20241125
  Transmission Date: 20250115
  Serious: No
  Sender: AVADEL CNS PHARMACEUTICALS, LLC
  Company Number: US-AVADEL CNS PHARMACEUTICALS, LLC-2024AVA01241

PATIENT
  Sex: Female

DRUGS (3)
  1. LUMRYZ [Suspect]
     Active Substance: SODIUM OXYBATE
     Indication: Narcolepsy
     Dosage: 9 G, EACH NIGHT
     Dates: start: 20240513, end: 202407
  2. LUMRYZ [Suspect]
     Active Substance: SODIUM OXYBATE
     Indication: Cataplexy
     Dosage: HALF PACKET (4.5 G), EACH NIGHT
     Dates: start: 202407, end: 2024
  3. LUMRYZ [Suspect]
     Active Substance: SODIUM OXYBATE
     Dosage: GUESSTIMATING WHAT 7.5 G WOULD BE, ONCE NIGHTLY
     Dates: start: 2024

REACTIONS (4)
  - Nocturia [Not Recovered/Not Resolved]
  - Somnolence [Not Recovered/Not Resolved]
  - Unevaluable event [Not Recovered/Not Resolved]
  - Wrong technique in product usage process [Not Recovered/Not Resolved]

NARRATIVE: CASE EVENT DATE: 20240101
